FAERS Safety Report 9641763 (Version 4)
Quarter: 2014Q3

REPORT INFORMATION
  Report Type: Spontaneous
  Country: JP (occurrence: JP)
  Receive Date: 20131023
  Receipt Date: 20140714
  Transmission Date: 20150326
  Serious: Yes (Life-Threatening, Hospitalization)
  Sender: FDA-Public Use
  Company Number: JP-ABBVIE-13P-087-1145028-00

PATIENT
  Age: 74 Year
  Sex: Female

DRUGS (21)
  1. HUMIRA [Suspect]
     Active Substance: ADALIMUMAB
     Dates: start: 20130416, end: 20130704
  2. ETODOLAC. [Concomitant]
     Active Substance: ETODOLAC
     Indication: ARTHRALGIA
     Route: 048
     Dates: start: 20120626, end: 20130610
  3. FOLIC ACID. [Concomitant]
     Active Substance: FOLIC ACID
     Indication: FOLATE DEFICIENCY
     Dosage: 5 MG X2/DAY; TUESDAYS
     Route: 048
     Dates: start: 20100223, end: 20130706
  4. INDOMETACIN FARNESIL [Concomitant]
     Indication: ARTHRALGIA
     Route: 048
     Dates: start: 20130610, end: 20130913
  5. RHEUMATREX [Suspect]
     Active Substance: METHOTREXATE SODIUM
     Indication: RHEUMATOID ARTHRITIS
     Dosage: TWICE/WEEK, WEDNESDAYS, SATURDAYS
     Route: 048
     Dates: start: 20100223, end: 20130804
  6. IRSOGLADINE MALEATE [Concomitant]
     Active Substance: IRSOGLADINE MALEATE
     Indication: GASTRIC ULCER
     Route: 048
     Dates: start: 20100223
  7. FELBINAC [Concomitant]
     Active Substance: FELBINAC
     Indication: RHEUMATOID ARTHRITIS
     Route: 061
     Dates: start: 20100223
  8. INDOMETACIN FARNESIL [Concomitant]
     Indication: ARTHRALGIA
  9. PREDNISOLONE FARNESYLATE [Concomitant]
     Indication: RHEUMATOID ARTHRITIS
     Route: 061
     Dates: start: 20100223
  10. INDOMETACIN [Concomitant]
     Active Substance: INDOMETHACIN
     Indication: RHEUMATOID ARTHRITIS
     Route: 048
     Dates: start: 20130913
  11. HUMIRA [Suspect]
     Active Substance: ADALIMUMAB
     Indication: RHEUMATOID ARTHRITIS
     Dates: start: 20120802, end: 20120823
  12. INDOMETACIN [Concomitant]
     Active Substance: INDOMETHACIN
     Indication: RHEUMATOID ARTHRITIS
  13. HUMIRA [Suspect]
     Active Substance: ADALIMUMAB
     Dates: start: 20121018, end: 20121113
  14. HUMIRA [Suspect]
     Active Substance: ADALIMUMAB
     Dates: start: 20121113, end: 20130305
  15. ETODOLAC. [Concomitant]
     Active Substance: ETODOLAC
     Indication: RHEUMATOID ARTHRITIS
  16. LOXOPROFEN SODIUM [Concomitant]
     Active Substance: LOXOPROFEN SODIUM
     Indication: RHEUMATOID ARTHRITIS
     Dosage: TRANSDERMAL PATCH
     Route: 062
     Dates: start: 20100223
  17. ELCATONIN [Concomitant]
     Active Substance: ELCATONIN
     Indication: OSTEOPOROSIS
     Route: 030
     Dates: start: 20120713, end: 20130704
  18. HUMIRA [Suspect]
     Active Substance: ADALIMUMAB
     Dates: start: 20120823, end: 20121018
  19. HUMIRA [Suspect]
     Active Substance: ADALIMUMAB
     Dates: start: 20130305, end: 20130416
  20. FOLIC ACID. [Concomitant]
     Active Substance: FOLIC ACID
     Indication: DRUG THERAPY
  21. POLAPREZINC [Concomitant]
     Indication: CHRONIC GASTRITIS
     Route: 048
     Dates: start: 20100316

REACTIONS (6)
  - Pyrexia [Unknown]
  - Pulmonary tuberculosis [Recovering/Resolving]
  - Cough [Unknown]
  - Pneumonia [Unknown]
  - Lung neoplasm malignant [Not Recovered/Not Resolved]
  - Depression [Unknown]

NARRATIVE: CASE EVENT DATE: 201308
